FAERS Safety Report 10369955 (Version 1)
Quarter: 2014Q3

REPORT INFORMATION
  Report Type: Spontaneous
  Country: US (occurrence: US)
  Receive Date: 20140808
  Receipt Date: 20140808
  Transmission Date: 20150326
  Serious: No
  Sender: FDA-Public Use
  Company Number: US-BIOGENIDEC-2014BI078120

PATIENT
  Sex: Female

DRUGS (1)
  1. AVONEX [Suspect]
     Active Substance: INTERFERON BETA-1A
     Indication: MULTIPLE SCLEROSIS
     Route: 030
     Dates: start: 19991015, end: 201404

REACTIONS (9)
  - Hypoaesthesia [Not Recovered/Not Resolved]
  - Drug dose omission [Unknown]
  - Multiple sclerosis relapse [Unknown]
  - Depressed mood [Unknown]
  - Influenza like illness [Unknown]
  - Anxiety [Recovered/Resolved]
  - Stress [Recovered/Resolved]
  - Paraesthesia [Unknown]
  - Fatigue [Unknown]

NARRATIVE: CASE EVENT DATE: 2014
